FAERS Safety Report 8328435-5 (Version None)
Quarter: 2012Q2

REPORT INFORMATION
  Report Type: 
  Country: None (occurrence: None)
  Receive Date: 20120502
  Receipt Date: 20120418
  Transmission Date: 20120825
  Serious: Yes (Hospitalization, Other)
  Sender: FDA-Public Use
  Company Number: JP-AMGEN-JPNSP2011044840

PATIENT
  Age: 60 Year
  Sex: Female
  Weight: 54 kg

DRUGS (14)
  1. EVOXAC [Concomitant]
     Indication: SJOGREN'S SYNDROME
     Dosage: 30 MG, 2X/DAY
     Route: 048
  2. RHEUMATREX [Concomitant]
     Indication: RHEUMATOID ARTHRITIS
     Dosage: 8 MG, QWK
     Route: 048
  3. FOLIAMIN [Concomitant]
     Indication: PROPHYLAXIS
     Dosage: 5 MG, WEEKLY
     Route: 048
  4. PREDNISOLONE [Concomitant]
     Indication: RHEUMATOID ARTHRITIS
     Dosage: 3 MG ONCE DAILY IN MORNING
     Route: 048
  5. EVISTA [Concomitant]
     Indication: OSTEOPOROSIS
     Dosage: 60 MG, 1X/DAY
     Route: 048
  6. ENBREL [Suspect]
     Indication: RHEUMATOID ARTHRITIS
     Dosage: 25 MG, 2X/WEEK
     Route: 058
     Dates: start: 20101122, end: 20110823
  7. ISONIAZID [Concomitant]
     Indication: ANTIBIOTIC PROPHYLAXIS
     Dosage: 300 MG, 1X/DAY
     Route: 048
  8. COTRIM [Concomitant]
     Indication: PROPHYLAXIS
     Dosage: 1 DF, 2X/WEEK
     Route: 048
  9. FAMOTIDINE [Concomitant]
     Indication: GASTRITIS PROPHYLAXIS
     Dosage: 10 MG, 2X/DAY
     Route: 048
  10. PYDOXAL [Concomitant]
     Indication: PROPHYLAXIS
     Dosage: 30 MG, 1X/DAY
     Route: 048
  11. PREDNISOLONE [Concomitant]
     Dosage: 3 MG, 1X/DAY
     Route: 048
  12. VOLTAREN [Concomitant]
     Dosage: 12.5 MG, AS NEEDED
     Route: 054
  13. MAGMITT [Concomitant]
     Indication: CONSTIPATION
     Dosage: 250 MG, 3X/DAY
     Route: 048
  14. VOLTAREN [Concomitant]
     Indication: RHEUMATOID ARTHRITIS
     Dosage: UNK
     Dates: start: 19910101

REACTIONS (1)
  - ORGANISING PNEUMONIA [None]
